FAERS Safety Report 5353964-6 (Version None)
Quarter: 2007Q2

REPORT INFORMATION
  Report Type: 
  Country: None (occurrence: None)
  Receive Date: 20070521
  Receipt Date: 20070124
  Transmission Date: 20071010
  Serious: No
  Sender: FDA-Public Use
  Company Number: WAES 0701USA04277

PATIENT
  Age: 84 Year
  Sex: Female

DRUGS (13)
  1. JANUVIA [Suspect]
     Indication: DIABETES MELLITUS NON-INSULIN-DEPENDENT
     Dosage: 100 MG/DAILY/PO
     Route: 048
     Dates: start: 20061224
  2. AVANDIA [Concomitant]
  3. AVAPRO [Concomitant]
  4. LANTUS [Concomitant]
  5. NEXIUM [Concomitant]
  6. NORVASC [Concomitant]
  7. ZOLOFT [Concomitant]
  8. ASPIRIN [Concomitant]
  9. DIGOXIN [Concomitant]
  10. METFORMIN HCL [Concomitant]
  11. METOPROLOL SUCCINATE [Concomitant]
  12. TRIAMTERENE [Concomitant]
  13. WARFARIN SODIUM [Concomitant]

REACTIONS (2)
  - COLD SWEAT [None]
  - HYPOTENSION [None]
